FAERS Safety Report 15660852 (Version 1)
Quarter: 2018Q4

REPORT INFORMATION
  Report Type: Spontaneous
  Country: FR (occurrence: FR)
  Receive Date: 20181127
  Receipt Date: 20181127
  Transmission Date: 20190205
  Serious: Yes (Hospitalization)
  Sender: FDA-Public Use
  Company Number: FR-MERZ NORTH AMERICA, INC.-18MRZ-00599

PATIENT
  Age: 69 Year
  Sex: Female

DRUGS (1)
  1. ASCLERA [Suspect]
     Active Substance: POLIDOCANOL
     Indication: VARICOSE VEIN
     Dosage: UNKNOWN
     Route: 042

REACTIONS (13)
  - Cyanosis [Recovered/Resolved]
  - Sinus tachycardia [Recovered/Resolved]
  - Thrombophlebitis superficial [Recovered/Resolved]
  - Embolism [Recovered/Resolved]
  - Hypoxia [Recovered/Resolved]
  - Right ventricular dysfunction [Recovered/Resolved]
  - Cor pulmonale acute [Recovered/Resolved]
  - Chest pain [Recovered/Resolved]
  - Pulmonary infarction [Recovered/Resolved]
  - Pneumonia [Recovered/Resolved]
  - Respiratory distress [Recovered/Resolved]
  - Electrocardiogram ST-T segment depression [Recovered/Resolved]
  - Pulmonary embolism [Recovered/Resolved]
